FAERS Safety Report 21403108 (Version 2)
Quarter: 2023Q1

REPORT INFORMATION
  Report Type: Spontaneous
  Country: GB (occurrence: GB)
  Receive Date: 20221003
  Receipt Date: 20230213
  Transmission Date: 20230418
  Serious: Yes (Hospitalization)
  Sender: FDA-Public Use
  Company Number: GB-MHRA-MED-202209281605315750-LBWFS

PATIENT

DRUGS (9)
  1. SOTROVIMAB [Suspect]
     Active Substance: SOTROVIMAB
     Indication: Adverse drug reaction
     Dosage: 500 MG, QD
     Route: 065
     Dates: start: 20220928, end: 20220928
  2. SOTROVIMAB [Suspect]
     Active Substance: SOTROVIMAB
     Indication: COVID-19
  3. CALCIUM CARBONATE [Concomitant]
     Active Substance: CALCIUM CARBONATE
     Indication: Product used for unknown indication
     Dosage: UNK
     Route: 065
  4. CYCLOPHOSPHAMIDE [Concomitant]
     Active Substance: CYCLOPHOSPHAMIDE
     Indication: Product used for unknown indication
     Dosage: UNK
     Route: 065
  5. DEXAMETHASONE [Concomitant]
     Active Substance: DEXAMETHASONE
     Indication: Product used for unknown indication
     Dosage: UNK
     Route: 065
  6. FUROSEMIDE [Concomitant]
     Active Substance: FUROSEMIDE
     Indication: Product used for unknown indication
     Dosage: UNK
     Route: 065
  7. LANSOPRAZOLE [Concomitant]
     Active Substance: LANSOPRAZOLE
     Indication: Product used for unknown indication
     Dosage: UNK
     Route: 065
  8. POMALIDOMIDE [Concomitant]
     Active Substance: POMALIDOMIDE
     Indication: Product used for unknown indication
     Dosage: UNK
     Route: 065
  9. AMLODIPINE [Concomitant]
     Active Substance: AMLODIPINE BESYLATE
     Indication: Product used for unknown indication
     Dosage: UNK
     Route: 065

REACTIONS (1)
  - Hypersensitivity [Recovered/Resolved]

NARRATIVE: CASE EVENT DATE: 20220928
